FAERS Safety Report 18187878 (Version 1)
Quarter: 2020Q3

REPORT INFORMATION
  Report Type: Spontaneous
  Country: FR (occurrence: FR)
  Receive Date: 20200824
  Receipt Date: 20200824
  Transmission Date: 20201103
  Serious: Yes (Other)
  Sender: FDA-Public Use
  Company Number: FR-ROCHE-2663679

PATIENT
  Age: 72 Year
  Sex: Male
  Weight: 76 kg

DRUGS (11)
  1. PANTOPRAZOLE SODIUM SESQUIHYDRATE [Concomitant]
     Active Substance: PANTOPRAZOLE SODIUM
     Route: 048
  2. STRESAM [Concomitant]
     Active Substance: ETIFOXINE
     Route: 048
  3. BISOCE [Concomitant]
     Active Substance: BISOPROLOL
     Route: 048
  4. XATRAL LP [Suspect]
     Active Substance: ALFUZOSIN
     Indication: PRODUCT USED FOR UNKNOWN INDICATION
     Route: 065
  5. CORTANCYL [Concomitant]
     Active Substance: PREDNISONE
     Route: 048
     Dates: start: 201806
  6. KARDEGIC [Concomitant]
     Active Substance: ASPIRIN DL-LYSINE
     Route: 048
  7. CARAFATE [Concomitant]
     Active Substance: SUCRALFATE
     Route: 048
  8. RAMIPRIL. [Concomitant]
     Active Substance: RAMIPRIL
     Route: 048
  9. ROACTEMRA [Suspect]
     Active Substance: TOCILIZUMAB
     Indication: AORTITIS
     Route: 042
     Dates: start: 20191127, end: 20191127
  10. ENTECAVIR. [Concomitant]
     Active Substance: ENTECAVIR
     Route: 048
  11. TAHOR [Concomitant]
     Active Substance: ATORVASTATIN CALCIUM
     Route: 048

REACTIONS (3)
  - Thrombocytopenia [Recovered/Resolved]
  - Ecchymosis [Recovered/Resolved]
  - Hypofibrinogenaemia [Recovered/Resolved]

NARRATIVE: CASE EVENT DATE: 201912
